FAERS Safety Report 14935150 (Version 2)
Quarter: 2018Q2

REPORT INFORMATION
  Report Type: Spontaneous
  Country: US (occurrence: US)
  Receive Date: 20180524
  Receipt Date: 20180625
  Transmission Date: 20180711
  Serious: Yes (Other)
  Sender: FDA-Public Use
  Company Number: US-BEH-2018090871

PATIENT
  Sex: Female

DRUGS (1)
  1. HIZENTRA [Suspect]
     Active Substance: HUMAN IMMUNOGLOBULIN G
     Indication: PRODUCT USED FOR UNKNOWN INDICATION
     Dosage: UNK
     Route: 065
     Dates: start: 20110513

REACTIONS (6)
  - Dyspnoea [Unknown]
  - Anaphylactic reaction [Unknown]
  - Swelling [Unknown]
  - Injection site reaction [Unknown]
  - Erythema [Unknown]
  - Cough [Unknown]

NARRATIVE: CASE EVENT DATE: 20110513
